FAERS Safety Report 4865051-1 (Version None)
Quarter: 2005Q4

REPORT INFORMATION
  Report Type: 
  Country: None (occurrence: None)
  Receive Date: 20051219
  Receipt Date: 20051207
  Transmission Date: 20060501
  Serious: Yes (Hospitalization)
  Sender: FDA-Public Use
  Company Number: 2005149509

PATIENT
  Age: 67 Year
  Sex: Female

DRUGS (17)
  1. CABERGOLINE [Suspect]
     Indication: PARKINSON'S DISEASE
     Dosage: 1 MG (1 MG, QD) ORAL
     Route: 048
  2. GRAPEFRUIT JUICE (CITRUS PARADISI FRUIT JUICE) [Suspect]
     Indication: ILL-DEFINED DISORDER
     Dosage: ORAL
     Route: 048
  3. PARLODEL [Suspect]
     Indication: PARKINSON'S DISEASE
     Dosage: 12.5 MG ORAL
     Route: 048
  4. CLARITHROMYCIN [Suspect]
     Indication: ASTHMA
     Dosage: 400 MG ORAL
     Route: 048
  5. PURSENNID (SENNA LEAF) [Concomitant]
  6. GANATON (ITOPRIDE HYDROCHLORIDE) [Concomitant]
  7. SYMMETREL [Concomitant]
  8. SELEGILINE HYDROCHLORIDE [Concomitant]
  9. MADOPAR (BENSERAZIDE HYDROCHLORIDE, LEVODOPA) [Concomitant]
  10. METLIGINE (MIDODRINE HYDROCHLORIDE) [Concomitant]
  11. SIGMART (NICORANDIL) [Concomitant]
  12. PERSANTIN [Concomitant]
  13. PRAVASTATIN [Concomitant]
  14. SELBEX (TEPRENONE) [Concomitant]
  15. AMBROXOL HYDROCHLORIDE [Concomitant]
  16. BRONICA (SERATRODAST) [Concomitant]
  17. UNICON (THEOPHYLLINE) [Concomitant]

REACTIONS (11)
  - ARTHROPOD BITE [None]
  - COMMUNICATION DISORDER [None]
  - DELUSION [None]
  - DRUG INTERACTION [None]
  - DYSKINESIA [None]
  - FOOD INTERACTION [None]
  - HALLUCINATION [None]
  - INTENTIONAL SELF-INJURY [None]
  - MEDICATION ERROR [None]
  - MOBILITY DECREASED [None]
  - RASH [None]
